FAERS Safety Report 8477359-1 (Version None)
Quarter: 2012Q2

REPORT INFORMATION
  Report Type: 
  Country: None (occurrence: None)
  Receive Date: 20120629
  Receipt Date: 20120626
  Transmission Date: 20120825
  Serious: Yes (Death)
  Sender: FDA-Public Use
  Company Number: TR-B.I. PHARMACEUTICALS,INC./RIDGEFIELD-2012-AP-00505TK

PATIENT
  Age: 83 Year
  Sex: Female

DRUGS (2)
  1. CLEXAN [Concomitant]
     Indication: PROPHYLAXIS
     Dates: start: 20120608, end: 20120611
  2. PRADAXA [Suspect]
     Indication: CEREBROVASCULAR ACCIDENT PROPHYLAXIS
     Dosage: 2X1
     Dates: start: 20120608, end: 20120611

REACTIONS (1)
  - RESPIRATORY ARREST [None]
